FAERS Safety Report 21586953 (Version 1)
Quarter: 2022Q4

REPORT INFORMATION
  Report Type: Other
  Country: FR (occurrence: FR)
  Receive Date: 20221113
  Receipt Date: 20221113
  Transmission Date: 20230113
  Serious: No
  Sender: FDA-Public Use
  Company Number: FR-TOLMAR, INC.-22FR037347

PATIENT
  Age: 66 Year
  Sex: Male

DRUGS (2)
  1. ELIGARD [Suspect]
     Active Substance: LEUPROLIDE ACETATE
     Indication: Prostate cancer
     Dosage: 22.5 MILLIGRAM, Q 3 MONTH
     Dates: start: 2022
  2. RADIATION THERAPY [Concomitant]
     Active Substance: RADIATION THERAPY
     Indication: Prostate cancer

REACTIONS (1)
  - Fatigue [Not Recovered/Not Resolved]

NARRATIVE: CASE EVENT DATE: 20221028
